FAERS Safety Report 5488671-2 (Version None)
Quarter: 2007Q4

REPORT INFORMATION
  Report Type: 
  Country: None (occurrence: None)
  Receive Date: 20071016
  Receipt Date: 20071011
  Transmission Date: 20080405
  Serious: Yes (Death, Hospitalization)
  Sender: FDA-Public Use
  Company Number: 008-C5013-07070922

PATIENT
  Age: 69 Year
  Sex: Male

DRUGS (4)
  1. CC-5013 (LENALIDOMIDE) (CAPSULES) [Suspect]
     Indication: MULTIPLE MYELOMA
     Dosage: 25 MG, DAILY, ORAL; 25 MG, DAILY, ORAL
     Route: 048
     Dates: start: 20070627, end: 20070703
  2. CC-5013 (LENALIDOMIDE) (CAPSULES) [Suspect]
     Indication: MULTIPLE MYELOMA
     Dosage: 25 MG, DAILY, ORAL; 25 MG, DAILY, ORAL
     Route: 048
     Dates: start: 20070704, end: 20070712
  3. DEXAMETHASONE TAB [Suspect]
     Indication: MULTIPLE MYELOMA
     Dosage: 40 MG, DAILY ON DAY 1-4, 9-12,  17-20
     Dates: start: 20070627, end: 20070630
  4. AMOXICILLIN [Concomitant]

REACTIONS (17)
  - ATELECTASIS [None]
  - BLOOD LACTATE DEHYDROGENASE INCREASED [None]
  - CONTUSION [None]
  - DECREASED APPETITE [None]
  - DISEASE PROGRESSION [None]
  - DYSPHONIA [None]
  - ENTEROCOCCAL INFECTION [None]
  - FALL [None]
  - GENERAL PHYSICAL HEALTH DETERIORATION [None]
  - LETHARGY [None]
  - LOWER RESPIRATORY TRACT INFECTION [None]
  - OESOPHAGEAL CANDIDIASIS [None]
  - ORAL CANDIDIASIS [None]
  - PNEUMONIA [None]
  - SINUS TACHYCARDIA [None]
  - SOMNOLENCE [None]
  - TREATMENT FAILURE [None]
